FAERS Safety Report 8621491-6 (Version None)
Quarter: 2012Q3

REPORT INFORMATION
  Report Type: 
  Country: None (occurrence: None)
  Receive Date: 20120824
  Receipt Date: 20120815
  Transmission Date: 20120928
  Serious: Yes (Other)
  Sender: FDA-Public Use
  Company Number: US-ASTRAZENECA-2012SE25390

PATIENT
  Age: 72 Year
  Sex: Male

DRUGS (1)
  1. NEXIUM [Suspect]
     Route: 048

REACTIONS (6)
  - DIABETES MELLITUS [None]
  - BACK PAIN [None]
  - INTENTIONAL DRUG MISUSE [None]
  - DYSPEPSIA [None]
  - ERUCTATION [None]
  - ARTHRALGIA [None]
